FAERS Safety Report 12551521 (Version 2)
Quarter: 2016Q3

REPORT INFORMATION
  Report Type: Spontaneous
  Country: US (occurrence: US)
  Receive Date: 20160713
  Receipt Date: 20160823
  Transmission Date: 20161109
  Serious: No
  Sender: FDA-Public Use
  Company Number: PHEH2016US016999

PATIENT
  Sex: Female

DRUGS (2)
  1. PROGESTERON [Concomitant]
     Indication: PRODUCT USED FOR UNKNOWN INDICATION
     Route: 065
  2. VIVELLE-DOT [Suspect]
     Active Substance: ESTRADIOL
     Indication: PRODUCT USED FOR UNKNOWN INDICATION
     Dosage: 0.1 MG, UNK
     Route: 065

REACTIONS (4)
  - Hot flush [Unknown]
  - Feeling abnormal [Unknown]
  - Breast atrophy [Unknown]
  - Drug ineffective [Unknown]
